FAERS Safety Report 14954767 (Version 3)
Quarter: 2019Q1

REPORT INFORMATION
  Report Type: Spontaneous
  Country: US (occurrence: US)
  Receive Date: 20180530
  Receipt Date: 20190108
  Transmission Date: 20190417
  Serious: No
  Sender: FDA-Public Use
  Company Number: US-JNJFOC-20180523015

PATIENT
  Sex: Male
  Weight: 158.76 kg

DRUGS (2)
  1. STELARA [Suspect]
     Active Substance: USTEKINUMAB
     Indication: PSORIATIC ARTHROPATHY
     Route: 058
  2. FLUTICASON [Concomitant]
     Active Substance: FLUTICASONE
     Route: 065

REACTIONS (1)
  - Drug ineffective [Unknown]
